FAERS Safety Report 4622694-8 (Version None)
Quarter: 2005Q1

REPORT INFORMATION
  Report Type: 
  Country: None (occurrence: None)
  Receive Date: 20050329
  Receipt Date: 20050329
  Transmission Date: 20050727
  Serious: Yes (Other)
  Sender: FDA-Public Use
  Company Number: None

PATIENT

DRUGS (2)
  1. ZYPREXA [Suspect]
  2. ARGATROBAN [Suspect]

REACTIONS (1)
  - ACTIVATED PARTIAL THROMBOPLASTIN TIME SHORTENED [None]
